FAERS Safety Report 8588862-8 (Version None)
Quarter: 2012Q3

REPORT INFORMATION
  Report Type: 
  Country: None (occurrence: None)
  Receive Date: 20120813
  Receipt Date: 20120802
  Transmission Date: 20120928
  Serious: Yes (Death, Hospitalization, Disabling)
  Sender: FDA-Public Use
  Company Number: FR-PFIZER INC-2012194479

PATIENT
  Age: 71 Year
  Sex: Male

DRUGS (2)
  1. CORDARONE [Suspect]
     Indication: ATRIAL FIBRILLATION
     Dosage: 200 MG, DAILY
     Route: 048
     Dates: start: 20110901, end: 20120401
  2. ASPIRIN [Concomitant]
     Dosage: UNK

REACTIONS (4)
  - OPTIC NEUROPATHY [None]
  - PAPILLOEDEMA [None]
  - SEPTIC SHOCK [None]
  - VISUAL ACUITY REDUCED [None]
